FAERS Safety Report 17269436 (Version 1)
Quarter: 2020Q1

REPORT INFORMATION
  Report Type: Spontaneous
  Country: US (occurrence: US)
  Receive Date: 20200114
  Receipt Date: 20200114
  Transmission Date: 20200409
  Serious: Yes (Life-Threatening)
  Sender: FDA-Public Use
  Company Number: NVSC2020US006797

PATIENT
  Age: 48 Year
  Sex: Female

DRUGS (1)
  1. DOXYCYCLINE. [Suspect]
     Active Substance: DOXYCYCLINE
     Indication: LEPTOSPIROSIS
     Dosage: UNK 2 WEEK COURSE
     Route: 065

REACTIONS (5)
  - Respiratory failure [Recovered/Resolved]
  - Product use in unapproved indication [Unknown]
  - Jarisch-Herxheimer reaction [Recovered/Resolved]
  - Shock [Recovered/Resolved]
  - Cardiac arrest [Recovered/Resolved]
